FAERS Safety Report 7246500-0 (Version None)
Quarter: 2011Q1

REPORT INFORMATION
  Report Type: 
  Country: None (occurrence: None)
  Receive Date: 20110126
  Receipt Date: 20110113
  Transmission Date: 20110831
  Serious: Yes (Hospitalization)
  Sender: FDA-Public Use
  Company Number: DE-MYLANLABS-2011S1000959

PATIENT
  Age: 40 Year
  Sex: Female

DRUGS (2)
  1. PHENYTOIN [Suspect]
     Indication: GRAND MAL CONVULSION
     Route: 040
  2. PHENYTOIN [Suspect]
     Dosage: 500MG INFUSED OVER 12 HOURS
     Route: 041

REACTIONS (1)
  - PURPLE GLOVE SYNDROME [None]
